FAERS Safety Report 9921870 (Version 2)
Quarter: 2014Q2

REPORT INFORMATION
  Report Type: Spontaneous
  Country: US (occurrence: US)
  Receive Date: 20140225
  Receipt Date: 20140423
  Transmission Date: 20141212
  Serious: Yes (Hospitalization, Other)
  Sender: FDA-Public Use
  Company Number: US-BAYER-2014-028046

PATIENT
  Age: 26 Year
  Sex: Female
  Weight: 61.22 kg

DRUGS (5)
  1. GIANVI [Suspect]
  2. YAZ [Suspect]
  3. YASMIN [Suspect]
  4. ARIXTRA [Concomitant]
  5. NORCO [Concomitant]
     Indication: PAIN

REACTIONS (3)
  - Pulmonary embolism [None]
  - Deep vein thrombosis [None]
  - Pelvic venous thrombosis [None]
